FAERS Safety Report 10228429 (Version 4)
Quarter: 2014Q3

REPORT INFORMATION
  Report Type: Report from Study
  Country: DE (occurrence: DE)
  Receive Date: 20140610
  Receipt Date: 20140926
  Transmission Date: 20150326
  Serious: Yes (Death, Hospitalization)
  Sender: FDA-Public Use
  Company Number: DE-ACTELION-A-CH2014-099886

PATIENT
  Age: 4 Day
  Sex: Female
  Weight: .43 kg

DRUGS (1)
  1. TRACLEER [Suspect]
     Active Substance: BOSENTAN\BOSENTAN MONOHYDRATE
     Indication: EXPOSURE DURING PREGNANCY
     Route: 064

REACTIONS (4)
  - Multi-organ failure [Fatal]
  - Ductus arteriosus stenosis foetal [Unknown]
  - Premature baby [Fatal]
  - Patent ductus arteriosus repair [Recovered/Resolved]
